FAERS Safety Report 17134152 (Version 1)
Quarter: 2019Q4

REPORT INFORMATION
  Report Type: Spontaneous
  Country: US (occurrence: US)
  Receive Date: 20191209
  Receipt Date: 20191209
  Transmission Date: 20200122
  Serious: Yes (Other)
  Sender: FDA-Public Use
  Company Number: None

PATIENT
  Age: 40 Year
  Sex: Female
  Weight: 87.75 kg

DRUGS (1)
  1. COLGATE OPTIC WHITE SPARKLING MINT [Suspect]
     Active Substance: SODIUM MONOFLUOROPHOSPHATE
     Indication: DENTAL CARE
     Route: 061
     Dates: start: 20190701, end: 20190707

REACTIONS (1)
  - Chemical burn of oral cavity [None]

NARRATIVE: CASE EVENT DATE: 20190701
